FAERS Safety Report 7502527-2 (Version None)
Quarter: 2011Q2

REPORT INFORMATION
  Report Type: 
  Country: None (occurrence: None)
  Receive Date: 20110523
  Receipt Date: 20110523
  Transmission Date: 20111010
  Serious: Yes (Hospitalization)
  Sender: FDA-Public Use
  Company Number: None

PATIENT
  Age: 65 Year
  Sex: Female
  Weight: 111.4 kg

DRUGS (15)
  1. PANITUMUMAB 200MG AMGEN [Suspect]
     Indication: RECTAL CANCER METASTATIC
     Dosage: 6MG/KG / 2 HOURS EVERY OTHER WEEK IV
     Route: 042
     Dates: start: 20110415, end: 20110512
  2. PERCOCET [Concomitant]
  3. AMBIEN [Concomitant]
  4. LEVOTHYROXINE SODIUM [Concomitant]
  5. LEVAQUIN [Concomitant]
  6. DECITABINE [Suspect]
     Indication: RECTAL CANCER METASTATIC
     Dosage: 45MG/M2 / 1 HOUR EVERY OTHER WEEK IV
     Route: 042
     Dates: start: 20110408, end: 20110505
  7. LYRICA [Concomitant]
  8. GEMFIBROZIL [Concomitant]
  9. LORTAB [Concomitant]
  10. CANDESARTAN/HYDROCHLOROTHIAZIDE [Concomitant]
  11. ALBUTEROL [Concomitant]
  12. RITALIN [Concomitant]
  13. METOPROLOL SUCCINATE EXTENDED RELEASE [Concomitant]
  14. VITAMIN B-12 [Concomitant]
  15. OXYBUTYNIN [Concomitant]

REACTIONS (10)
  - PNEUMONIA [None]
  - URINARY TRACT INFECTION [None]
  - FUNGAL INFECTION [None]
  - FATIGUE [None]
  - PHOTOSENSITIVITY REACTION [None]
  - NEUROPATHY PERIPHERAL [None]
  - HYPOMAGNESAEMIA [None]
  - BACTERIAL INFECTION [None]
  - RHINITIS [None]
  - GASTROINTESTINAL HAEMORRHAGE [None]
